FAERS Safety Report 4307906-2 (Version None)
Quarter: 2004Q1

REPORT INFORMATION
  Report Type: 
  Country: None (occurrence: None)
  Receive Date: 20040226
  Receipt Date: 20031022
  Transmission Date: 20041129
  Serious: Yes (Hospitalization)
  Sender: FDA-Public Use
  Company Number: 2003146843US

PATIENT
  Age: 71 Year
  Sex: Female

DRUGS (1)
  1. CELEBREX [Suspect]
     Indication: FALL
     Dosage: 200 MG QD ORAL
     Route: 048
     Dates: start: 20021001, end: 20030131

REACTIONS (5)
  - ABDOMINAL PAIN [None]
  - COUGH [None]
  - EPISTAXIS [None]
  - GASTRIC PERFORATION [None]
  - GASTROINTESTINAL HAEMORRHAGE [None]
